FAERS Safety Report 26123129 (Version 1)
Quarter: 2025Q4

REPORT INFORMATION
  Report Type: Spontaneous
  Country: TR (occurrence: TR)
  Receive Date: 20251204
  Receipt Date: 20251204
  Transmission Date: 20260117
  Serious: Yes (Hospitalization, Other)
  Sender: NOVO NORDISK
  Company Number: TR-NOVOPROD-1577858

PATIENT
  Sex: Female

DRUGS (1)
  1. NOVORAPID [Suspect]
     Active Substance: INSULIN ASPART
     Indication: Product used for unknown indication
     Dosage: UNK (ORANGE ONE THREE TIMES A DAY AND THE NIGHT ONE ONCE)

REACTIONS (7)
  - Hypoglycaemic coma [Unknown]
  - Upper limb fracture [Unknown]
  - Proteinuria [Unknown]
  - Premature delivery [Recovered/Resolved]
  - Blood glucose increased [Unknown]
  - Hunger [Unknown]
  - Maternal exposure during pregnancy [Recovered/Resolved]
